FAERS Safety Report 11359932 (Version 1)
Quarter: 2015Q3

REPORT INFORMATION
  Report Type: Spontaneous
  Country: BR (occurrence: BR)
  Receive Date: 20150810
  Receipt Date: 20150810
  Transmission Date: 20151125
  Serious: Yes (Other)
  Sender: FDA-Public Use
  Company Number: BR-ROCHE-1618352

PATIENT
  Sex: Male
  Weight: 95 kg

DRUGS (4)
  1. RIVOTRIL [Suspect]
     Active Substance: CLONAZEPAM
     Dosage: 30 TABLETS
     Route: 065
     Dates: start: 20150730
  2. RIVOTRIL [Suspect]
     Active Substance: CLONAZEPAM
     Indication: IRRITABILITY
     Route: 065
  3. RIVOTRIL [Suspect]
     Active Substance: CLONAZEPAM
     Dosage: 30 TABLETS
     Route: 065
     Dates: start: 20150731
  4. RIVOTRIL [Suspect]
     Active Substance: CLONAZEPAM
     Dosage: 30 TABLETS
     Route: 065
     Dates: start: 20150801

REACTIONS (8)
  - Bipolar disorder [Not Recovered/Not Resolved]
  - Fall [Unknown]
  - Intentional overdose [Unknown]
  - Drug administration error [Unknown]
  - Multiple injuries [Recovered/Resolved]
  - Somnolence [Unknown]
  - Amnesia [Unknown]
  - Suicide attempt [Unknown]

NARRATIVE: CASE EVENT DATE: 20150730
